FAERS Safety Report 7908797-0 (Version None)
Quarter: 2011Q4

REPORT INFORMATION
  Report Type: 
  Country: None (occurrence: None)
  Receive Date: 20111111
  Receipt Date: 20110915
  Transmission Date: 20120403
  Serious: Yes (Death, Hospitalization, Other)
  Sender: FDA-Public Use
  Company Number: CA-ELI_LILLY_AND_COMPANY-CA201002006237

PATIENT
  Sex: Male
  Weight: 70.2 kg

DRUGS (14)
  1. CETUXIMAB [Suspect]
     Indication: NON-SMALL CELL LUNG CANCER METASTATIC
     Dosage: 720 MG, UNKNOWN
     Route: 042
     Dates: start: 20070131, end: 20070131
  2. SENNA [Concomitant]
     Indication: CONSTIPATION
  3. FOLIC ACID [Concomitant]
     Indication: PREMEDICATION
     Dates: start: 20070125
  4. PEMETREXED [Suspect]
     Indication: NON-SMALL CELL LUNG CANCER METASTATIC
     Dosage: 900 MG, UNKNOWN
     Route: 042
     Dates: start: 20070131, end: 20070131
  5. ACETAMINOPHEN [Concomitant]
     Indication: ARTHRITIS
     Dates: start: 20020101
  6. MOXIFLOXACIN [Concomitant]
     Indication: BRONCHITIS
     Dates: start: 20070109, end: 20070116
  7. CELECOXIB [Concomitant]
     Indication: ARTHRITIS
     Dates: start: 20020101
  8. CODEINE SUL TAB [Concomitant]
     Indication: COUGH
  9. ESOMEPRAZOLE [Concomitant]
     Indication: GASTROOESOPHAGEAL REFLUX DISEASE
     Dates: start: 20040101
  10. FLURAZEPAM [Concomitant]
     Indication: INSOMNIA
     Dates: start: 20050101
  11. PREDNISONE TAB [Concomitant]
     Indication: COUGH
     Dates: start: 20070116, end: 20070128
  12. PAROXETINE HCL [Concomitant]
     Indication: ANXIETY
     Dates: start: 20040101
  13. LORAZEPAM [Concomitant]
     Indication: ANXIETY
     Dates: start: 19970101
  14. DOCUSATE SODIUM [Concomitant]
     Indication: CONSTIPATION

REACTIONS (3)
  - SEPSIS [None]
  - PNEUMONIA [None]
  - MYOCARDIAL INFARCTION [None]
